FAERS Safety Report 4434364-X (Version None)
Quarter: 2004Q3

REPORT INFORMATION
  Report Type: 
  Country: None (occurrence: None)
  Receive Date: 20040825
  Receipt Date: 20040809
  Transmission Date: 20050211
  Serious: Yes (Hospitalization, Other)
  Sender: FDA-Public Use
  Company Number: USA040874931

PATIENT
  Age: 60 Year
  Sex: Male
  Weight: 94 kg

DRUGS (12)
  1. HUMALOG MIX 75/25 [Suspect]
     Indication: DIABETES MELLITUS
     Dosage: 105 U DAY
     Dates: start: 20000101
  2. HUMULIN N [Suspect]
     Indication: DIABETES MELLITUS
     Dates: start: 19900101, end: 20000101
  3. ASPIRIN W/DIPYRIDAMOLE [Concomitant]
  4. LABETALOL HCL [Concomitant]
  5. DILATIAZEM [Concomitant]
  6. EZETIMIBE [Concomitant]
  7. SIMVASTATIN [Concomitant]
  8. GABAPENTIN [Concomitant]
  9. ESCITALOPRAM OXALATE [Concomitant]
  10. ZOLPIDEM TARTRATE [Concomitant]
  11. MECLIZINE HYDROCHLORIDE [Concomitant]
  12. PANTOPRAZOLE [Concomitant]

REACTIONS (14)
  - BLOOD CHOLESTEROL INCREASED [None]
  - BLOOD GLUCOSE INCREASED [None]
  - BRAIN STEM SYNDROME [None]
  - CEREBROVASCULAR ACCIDENT [None]
  - CORONARY ARTERY OCCLUSION [None]
  - DEPRESSION [None]
  - DIZZINESS [None]
  - DYSPHONIA [None]
  - FACIAL PAIN [None]
  - HEADACHE [None]
  - HYPERTENSION [None]
  - MACULAR DEGENERATION [None]
  - PAIN IN EXTREMITY [None]
  - PHARMACEUTICAL PRODUCT COMPLAINT [None]
